FAERS Safety Report 6312054-6 (Version None)
Quarter: 2009Q3

REPORT INFORMATION
  Report Type: 
  Country: None (occurrence: None)
  Receive Date: 20090813
  Receipt Date: 20090813
  Transmission Date: 20100115
  Serious: Yes (Other)
  Sender: FDA-Public Use
  Company Number: None

PATIENT
  Sex: Female
  Weight: 60.782 kg

DRUGS (1)
  1. REMICADE [Suspect]
     Indication: RHEUMATOID ARTHRITIS
     Dosage: 500 MG Q 8 WEEKS IV DRIP
     Route: 041
     Dates: start: 20030701, end: 20090102

REACTIONS (1)
  - NON-SMALL CELL LUNG CANCER [None]
